FAERS Safety Report 14683886 (Version 4)
Quarter: 2022Q2

REPORT INFORMATION
  Report Type: Report from Study
  Country: US (occurrence: US)
  Receive Date: 20180327
  Receipt Date: 20220422
  Transmission Date: 20220721
  Serious: Yes (Congenital Anomaly, Other)
  Sender: FDA-Public Use
  Company Number: US-VIIV HEALTHCARE LIMITED-US2018GSK050413

PATIENT
  Sex: Male
  Weight: 2.775 kg

DRUGS (1)
  1. ABACAVIR SULFATE\DOLUTEGRAVIR SODIUM\LAMIVUDINE [Suspect]
     Active Substance: ABACAVIR SULFATE\DOLUTEGRAVIR SODIUM\LAMIVUDINE
     Indication: HIV infection
     Dosage: 1 DF, UNK
     Route: 064

REACTIONS (3)
  - Congenital hydronephrosis [Recovered/Resolved]
  - Live birth [Unknown]
  - Foetal exposure during pregnancy [Unknown]
